FAERS Safety Report 7575241-5 (Version None)
Quarter: 2011Q2

REPORT INFORMATION
  Report Type: 
  Country: None (occurrence: None)
  Receive Date: 20110627
  Receipt Date: 20110623
  Transmission Date: 20111010
  Serious: Yes (Other)
  Sender: FDA-Public Use
  Company Number: DE-ABBOTT-11P-062-0734706-00

PATIENT
  Age: 33 Year
  Sex: Male

DRUGS (3)
  1. VALPROATE SODIUM [Suspect]
     Indication: EPILEPSY
     Dosage: DAILY, EXTENDED RELEASE
     Route: 048
  2. KEPPRA [Suspect]
     Indication: EPILEPSY
  3. LYRICA [Suspect]
     Indication: EPILEPSY

REACTIONS (2)
  - CONVULSION [None]
  - DRUG INTERACTION [None]
